FAERS Safety Report 6306660-2 (Version None)
Quarter: 2009Q3

REPORT INFORMATION
  Report Type: 
  Country: None (occurrence: None)
  Receive Date: 20090811
  Receipt Date: 20090811
  Transmission Date: 20100115
  Serious: Yes (Death)
  Sender: FDA-Public Use
  Company Number: None

PATIENT
  Sex: Male

DRUGS (10)
  1. REVLIMID [Suspect]
     Indication: MULTIPLE MYELOMA
     Dosage: 15MG DAILY ORALLY
     Route: 048
     Dates: start: 20060801, end: 20061001
  2. REVLIMID [Suspect]
     Indication: MULTIPLE MYELOMA
     Dosage: 15MG DAILY ORALLY
     Route: 048
     Dates: start: 20070801, end: 20071001
  3. HYDROMORPHONE HCL [Concomitant]
  4. ATENOLOL [Concomitant]
  5. FAMOTIDINE [Concomitant]
  6. OMEPRAZOLE [Concomitant]
  7. METOCLOPRAMIDE [Concomitant]
  8. PREDISONE [Concomitant]
  9. DEXAMETHASONE [Concomitant]
  10. BORTEZOMIB [Concomitant]

REACTIONS (2)
  - OEDEMA PERIPHERAL [None]
  - THROMBOCYTOPENIA [None]
